FAERS Safety Report 20590434 (Version 1)
Quarter: 2022Q1

REPORT INFORMATION
  Report Type: Spontaneous
  Country: GB (occurrence: None)
  Receive Date: 20220314
  Receipt Date: 20220314
  Transmission Date: 20220423
  Serious: Yes (Other)
  Sender: FDA-Public Use
  Company Number: 2022A105104

PATIENT
  Age: 73 Year
  Sex: Female

DRUGS (11)
  1. DAPAGLIFLOZIN [Suspect]
     Active Substance: DAPAGLIFLOZIN
     Indication: Hyperglycaemia
     Dosage: 10.0MG UNKNOWN
     Route: 065
     Dates: start: 20220221, end: 20220225
  2. ASPIRIN [Concomitant]
     Active Substance: ASPIRIN
  3. CLOBETASOL [Concomitant]
     Active Substance: CLOBETASOL
  4. COCODAMOL [Concomitant]
     Active Substance: ACETAMINOPHEN\CODEINE PHOSPHATE
  5. FUROSEMIDE [Concomitant]
     Active Substance: FUROSEMIDE
  6. GLICLAZIDE [Concomitant]
     Active Substance: GLICLAZIDE
  7. METFORMIN [Concomitant]
     Active Substance: METFORMIN HYDROCHLORIDE
  8. PAROXETINE [Concomitant]
     Active Substance: PAROXETINE
  9. PERINDOPRIL [Concomitant]
     Active Substance: PERINDOPRIL
  10. SITAGLIPTIN [Concomitant]
     Active Substance: SITAGLIPTIN
     Indication: Diabetes mellitus
  11. SOTALOL [Concomitant]
     Active Substance: SOTALOL

REACTIONS (4)
  - Nausea [Not Recovered/Not Resolved]
  - Abdominal pain upper [Not Recovered/Not Resolved]
  - Constipation [Not Recovered/Not Resolved]
  - Back pain [Not Recovered/Not Resolved]

NARRATIVE: CASE EVENT DATE: 20220225
